FAERS Safety Report 24208184 (Version 2)
Quarter: 2024Q3

REPORT INFORMATION
  Report Type: Spontaneous
  Country: JP (occurrence: JP)
  Receive Date: 20240814
  Receipt Date: 20240830
  Transmission Date: 20241017
  Serious: Yes (Death, Other)
  Sender: GLAXOSMITHKLINE
  Company Number: JP-GSK-JP2024JPN100398

PATIENT

DRUGS (15)
  1. DAPRODUSTAT [Suspect]
     Active Substance: DAPRODUSTAT
     Indication: Nephrogenic anaemia
     Dosage: 1 MG, 1D, AFTER DINNER
  2. LASIX [Concomitant]
     Active Substance: FUROSEMIDE
     Dosage: 20 MG, 1D
  3. SPIRONOLACTONE [Concomitant]
     Active Substance: SPIRONOLACTONE
     Dosage: 25 MG, 1D, AFTER BREAKFAST
  4. SODIUM FERROUS CITRATE [Concomitant]
     Active Substance: SODIUM FERROUS CITRATE
     Dosage: 50 MG, 1D, AFTER DINNER
  5. MIGLITOL OD [Concomitant]
     Dosage: 50 MG, TID, RIGHT BEFORE EVERY MEAL
  6. ROSUVASTATIN [Concomitant]
     Active Substance: ROSUVASTATIN\ROSUVASTATIN CALCIUM
     Dosage: 2.5 MG, 1D, AFTER BREAKFAST
  7. WARFARIN [Concomitant]
     Active Substance: WARFARIN
     Dosage: 3 MG, 1D, AFTER DINNER
  8. TRULICITY [Concomitant]
     Active Substance: DULAGLUTIDE
     Dosage: 1 ML, WE, FRIDAY
  9. MYCOSPOR [Concomitant]
     Active Substance: BIFONAZOLE
     Dosage: 10 G, 1D, SOLE OF THE FOOT
  10. ENTRESTO [Concomitant]
     Active Substance: SACUBITRIL\VALSARTAN
     Dosage: 200 MG, 1D, AFTER BREAKFAST
  11. BISOPROLOL FUMARATE [Concomitant]
     Active Substance: BISOPROLOL FUMARATE
     Dosage: 2.5 MG, 1D, AFTER BREAKFAST
  12. ESOMEPRAZOLE [Concomitant]
     Active Substance: ESOMEPRAZOLE
     Dosage: 20 MG, 1D, AFTER BREAKFAST
  13. FUROSEMIDE [Concomitant]
     Active Substance: FUROSEMIDE
     Dosage: 20 MG, 1D, AFTER BREAKFAST
  14. AMLODIPINE [Concomitant]
     Active Substance: AMLODIPINE BESYLATE
     Dosage: 5 MG, 1D, AFTER BREAKFAST
  15. FEBUXOSTAT [Concomitant]
     Active Substance: FEBUXOSTAT
     Dosage: 10 MG, 1D, AFTER BREAKFAST

REACTIONS (1)
  - Coronavirus pneumonia [Fatal]
